FAERS Safety Report 6511809-2 (Version None)
Quarter: 2009Q4

REPORT INFORMATION
  Report Type: 
  Country: None (occurrence: None)
  Receive Date: 20091222
  Receipt Date: 20091217
  Transmission Date: 20100525
  Serious: Yes (Death)
  Sender: FDA-Public Use
  Company Number: CN-ABBOTT-09P-035-0615218-00

PATIENT
  Sex: Male
  Weight: 74 kg

DRUGS (5)
  1. TRANSMETIL [Suspect]
     Indication: CHOLESTASIS
     Route: 042
     Dates: start: 20081110, end: 20081126
  2. COMPOUND GLYCYRRHIZIN [Concomitant]
     Indication: LIVER DISORDER
     Route: 042
     Dates: start: 20081031, end: 20081126
  3. COMPOUND GLYCYRRHIZIN [Concomitant]
     Indication: PROPHYLAXIS
  4. GLUTATHIONE [Concomitant]
     Indication: LIVER DISORDER
     Route: 042
     Dates: start: 20081031, end: 20081126
  5. GLUTATHIONE [Concomitant]
     Indication: PROPHYLAXIS

REACTIONS (1)
  - HEPATIC FAILURE [None]
